FAERS Safety Report 8336179-9 (Version None)
Quarter: 2012Q2

REPORT INFORMATION
  Report Type: 
  Country: None (occurrence: None)
  Receive Date: 20120504
  Receipt Date: 20120503
  Transmission Date: 20120825
  Serious: No
  Sender: FDA-Public Use
  Company Number: US-PFIZER INC-2012109089

PATIENT
  Sex: Female
  Weight: 70.7 kg

DRUGS (8)
  1. CHANTIX [Suspect]
     Dosage: 0.5 MG, UNK
     Route: 048
  2. OPANA [Concomitant]
     Indication: NEUROPATHY PERIPHERAL
     Dosage: 15 MG IN MORNING AND 10 MG IN NIGHT, 2X/DAY
     Route: 048
  3. LEVOTHYROXINE [Concomitant]
     Indication: THYROID DISORDER
     Dosage: UNK
  4. CYMBALTA [Concomitant]
     Indication: DEPRESSION
     Dosage: UNK
     Route: 048
  5. PROZAC [Suspect]
     Indication: DEPRESSION
     Dosage: UNK
     Route: 048
  6. CHANTIX [Suspect]
     Indication: SMOKING CESSATION THERAPY
     Dosage: 0.5 MG, DAILY
     Route: 048
     Dates: start: 20120401
  7. GABAPENTIN [Concomitant]
     Indication: NEURITIS
     Dosage: 600 MG, 4X/DAY
  8. METHOTREXATE [Concomitant]
     Indication: RHEUMATOID ARTHRITIS
     Dosage: 15 MG, WEEKLY
     Route: 048

REACTIONS (4)
  - STRESS [None]
  - DRUG INEFFECTIVE [None]
  - OSTEOPENIA [None]
  - DYSGEUSIA [None]
